FAERS Safety Report 9662107 (Version 2)
Quarter: 2013Q4

REPORT INFORMATION
  Report Type: Spontaneous
  Country: US (occurrence: US)
  Receive Date: 20131031
  Receipt Date: 20131031
  Transmission Date: 20140711
  Serious: No
  Sender: FDA-Public Use
  Company Number: US-PURDUE-USA-2011-0062563

PATIENT
  Sex: Female
  Weight: 104.31 kg

DRUGS (4)
  1. OXYCONTIN (NDA 22-272) [Suspect]
     Indication: NECK PAIN
     Dosage: 80 MG, Q12H
     Route: 048
  2. OXYCONTIN (NDA 22-272) [Suspect]
     Indication: BACK PAIN
  3. OXYCONTIN (NDA 22-272) [Suspect]
     Indication: SPINAL PAIN
  4. ROXICODONE [Concomitant]
     Indication: PAIN
     Dosage: 30 MG, Q3- 4H
     Dates: start: 200909

REACTIONS (2)
  - Drug effect decreased [Unknown]
  - Inadequate analgesia [Unknown]
